FAERS Safety Report 5926953-8 (Version None)
Quarter: 2008Q4

REPORT INFORMATION
  Report Type: 
  Country: None (occurrence: None)
  Receive Date: 20081022
  Receipt Date: 20081008
  Transmission Date: 20090506
  Serious: Yes (Hospitalization)
  Sender: FDA-Public Use
  Company Number: JP-EISAI MEDICAL RESEARCH-E2090-00545-SPO-JP

PATIENT
  Sex: Male

DRUGS (2)
  1. EXCEGRAN [Suspect]
     Indication: CONVULSION
     Route: 048
     Dates: start: 20080724, end: 20080830
  2. EXCEGRAN [Suspect]
     Indication: INJURY

REACTIONS (2)
  - DRUG RASH WITH EOSINOPHILIA AND SYSTEMIC SYMPTOMS [None]
  - LIVER DISORDER [None]
